FAERS Safety Report 9358190 (Version 2)
Quarter: 2013Q3

REPORT INFORMATION
  Report Type: Spontaneous
  Country: BR (occurrence: BR)
  Receive Date: 20130620
  Receipt Date: 20130716
  Transmission Date: 20140515
  Serious: Yes (Other)
  Sender: FDA-Public Use
  Company Number: BR-009507513-1212BRA009207

PATIENT
  Age: 34 Year
  Sex: Female
  Weight: 53 kg

DRUGS (2)
  1. NUVARING [Suspect]
     Indication: CONTRACEPTION
     Dosage: UNK
     Route: 067
  2. NUVARING [Suspect]
     Dosage: UNK
     Route: 067
     Dates: start: 2010

REACTIONS (4)
  - Complication of delivery [Recovered/Resolved]
  - Inappropriate schedule of drug administration [Unknown]
  - Incorrect drug administration duration [Unknown]
  - Maternal exposure before pregnancy [Unknown]
